FAERS Safety Report 4818907-X (Version None)
Quarter: 2005Q4

REPORT INFORMATION
  Report Type: 
  Country: None (occurrence: None)
  Receive Date: 20051101
  Receipt Date: 20051019
  Transmission Date: 20060501
  Serious: Yes (Hospitalization, Other)
  Sender: FDA-Public Use
  Company Number: 2005121535

PATIENT
  Age: 50 Year
  Sex: Female
  Weight: 47.5 kg

DRUGS (8)
  1. DIFLUCAN [Suspect]
     Indication: FUNGAL INFECTION
     Dosage: 400 MG (100 MG, QD), ORAL
     Route: 048
     Dates: start: 20050812, end: 20050819
  2. MICAFUNGIN (MICAFUNGN) [Concomitant]
  3. ALDACTONE A (SPIRONOLACTONE) (SPIRONOLACTONE) [Concomitant]
  4. LASIX [Concomitant]
  5. MICARDIS [Concomitant]
  6. NORVASC (AMLODIPINE BESILATE) (AMLODIPNE BESILATE) [Concomitant]
  7. CRAVIT (LEVOFLOXACIN) (LEVOFLOXACIN) [Concomitant]
  8. BIOFERMIN (LACTOMIN) (BACILLUS SUBTILIS, LACTOBACILLUS ACIDOPHILUS, ST [Concomitant]

REACTIONS (11)
  - CANDIDA PNEUMONIA [None]
  - CONVULSION [None]
  - DELIRIUM [None]
  - DEPRESSED LEVEL OF CONSCIOUSNESS [None]
  - DRUG LEVEL INCREASED [None]
  - LOSS OF CONSCIOUSNESS [None]
  - PRODUCTIVE COUGH [None]
  - PYREXIA [None]
  - TORSADE DE POINTES [None]
  - VENTRICULAR EXTRASYSTOLES [None]
  - VENTRICULAR TACHYCARDIA [None]
